FAERS Safety Report 19010212 (Version 1)
Quarter: 2021Q1

REPORT INFORMATION
  Report Type: Spontaneous
  Country: US (occurrence: US)
  Receive Date: 20210315
  Receipt Date: 20210315
  Transmission Date: 20210420
  Serious: Yes (Other)
  Sender: FDA-Public Use
  Company Number: NVSC2021US057598

PATIENT
  Age: 16 Year
  Sex: Female

DRUGS (2)
  1. GEMCITABINE. [Suspect]
     Active Substance: GEMCITABINE
     Indication: T-CELL LYMPHOMA
     Dosage: UNK
     Route: 065
  2. OXALIPLATIN. [Suspect]
     Active Substance: OXALIPLATIN
     Indication: T-CELL LYMPHOMA
     Dosage: UNK
     Route: 065

REACTIONS (4)
  - Cardiac failure [Unknown]
  - Haemodynamic instability [Unknown]
  - Product use in unapproved indication [Unknown]
  - Multiple organ dysfunction syndrome [Unknown]
